FAERS Safety Report 6546582-5 (Version None)
Quarter: 2010Q1

REPORT INFORMATION
  Report Type: 
  Country: None (occurrence: None)
  Receive Date: 20100122
  Receipt Date: 20100115
  Transmission Date: 20100710
  Serious: Yes (Hospitalization)
  Sender: FDA-Public Use
  Company Number: JP-ABBOTT-10P-087-0620278-00

PATIENT
  Age: 56 Year
  Sex: Female

DRUGS (1)
  1. CLARITH TAB [Suspect]
     Indication: BRONCHITIS
     Route: 048
     Dates: start: 20100107, end: 20100112

REACTIONS (1)
  - INTERSTITIAL LUNG DISEASE [None]
